FAERS Safety Report 6119360-9 (Version None)
Quarter: 2009Q1

REPORT INFORMATION
  Report Type: 
  Country: None (occurrence: None)
  Receive Date: 20090316
  Receipt Date: 20090305
  Transmission Date: 20090719
  Serious: Yes (Hospitalization)
  Sender: FDA-Public Use
  Company Number: FR-AVENTIS-200910919FR

PATIENT
  Age: 66 Year
  Sex: Male

DRUGS (8)
  1. RIFADIN [Suspect]
     Indication: ENDOCARDITIS
     Route: 048
     Dates: start: 20080515, end: 20080527
  2. TRIATEC                            /00885601/ [Suspect]
     Route: 048
     Dates: start: 20080517, end: 20080529
  3. VANCOCIN HYDROCHLORIDE [Suspect]
     Indication: ENDOCARDITIS
     Route: 042
     Dates: start: 20080502, end: 20080529
  4. CARDENSIEL [Suspect]
     Route: 048
     Dates: start: 20080506, end: 20080529
  5. TAHOR [Suspect]
     Route: 048
     Dates: end: 20080529
  6. ATARAX [Suspect]
     Indication: ANXIETY
     Route: 048
     Dates: start: 20080310, end: 20080529
  7. LEXOMIL [Suspect]
     Indication: ANXIETY
     Route: 048
     Dates: start: 20080517, end: 20080529
  8. INIPOMP                            /01263201/ [Suspect]
     Indication: PROPHYLAXIS
     Route: 048
     Dates: start: 20080515, end: 20080529

REACTIONS (1)
  - DRUG RASH WITH EOSINOPHILIA AND SYSTEMIC SYMPTOMS [None]
